FAERS Safety Report 10185203 (Version 2)
Quarter: 2014Q2

REPORT INFORMATION
  Report Type: Spontaneous
  Country: BE (occurrence: BE)
  Receive Date: 20140521
  Receipt Date: 20140617
  Transmission Date: 20141212
  Serious: Yes (Life-Threatening, Hospitalization)
  Sender: FDA-Public Use
  Company Number: BE-SA-2014SA064554

PATIENT
  Age: 88 Year
  Sex: Female

DRUGS (11)
  1. FUROSEMIDE [Suspect]
     Indication: PRODUCT USED FOR UNKNOWN INDICATION
     Route: 065
  2. CITALOPRAM [Suspect]
     Indication: PRODUCT USED FOR UNKNOWN INDICATION
     Dosage: 20 MG (STRENGTH) TABLET
     Route: 065
  3. AMIODARONE [Suspect]
     Indication: ARRHYTHMIA
     Route: 065
  4. LICORICE [Concomitant]
  5. THIAMAZOLE [Concomitant]
     Indication: GOITRE
  6. ALLOPURINOL [Concomitant]
  7. ACETYLSALICYLIC ACID [Concomitant]
  8. LORAZEPAM [Concomitant]
  9. SIMVASTATIN [Concomitant]
  10. LISINOPRIL [Concomitant]
  11. COLECALCIFEROL [Concomitant]

REACTIONS (13)
  - Hypokalaemia [Recovering/Resolving]
  - Muscular weakness [Recovering/Resolving]
  - Nausea [Recovering/Resolving]
  - Vomiting [Recovering/Resolving]
  - Malaise [Recovering/Resolving]
  - Electrocardiogram ST segment depression [Recovered/Resolved]
  - Extrasystoles [Recovering/Resolving]
  - Electrocardiogram abnormal [Recovered/Resolved]
  - Electrocardiogram QT prolonged [Recovered/Resolved]
  - Torsade de pointes [Recovered/Resolved]
  - Ventricular tachycardia [Recovering/Resolving]
  - Blood creatine phosphokinase MB increased [Recovering/Resolving]
  - Troponin increased [Recovering/Resolving]
